FAERS Safety Report 10233467 (Version 1)
Quarter: 2014Q2

REPORT INFORMATION
  Report Type: Spontaneous
  Country: GB (occurrence: None)
  Receive Date: 20140610
  Receipt Date: 20140610
  Transmission Date: 20141212
  Serious: Yes (Hospitalization, Disabling, Other)
  Sender: FDA-Public Use
  Company Number: GB-DEXPHARM-20140315

PATIENT
  Age: 53 Year
  Sex: Female

DRUGS (2)
  1. CYCLIZINE [Suspect]
     Indication: NAUSEA
     Dosage: 50 MG MILLIGRAM(S) INTRAVENOUS (NOT OTHERWISE SPECIFIED)
     Route: 042
  2. OMEPRAZOLE [Suspect]
     Dosage: 40 MG MILLIGRAM(S) INTRAVENOUS (NOT OTHERWISE SPECIFIED)
     Route: 042
     Dates: start: 20140513

REACTIONS (3)
  - Myoclonus [None]
  - Myoclonic epilepsy [None]
  - Similar reaction on previous exposure to drug [None]
